FAERS Safety Report 9485424 (Version 2)
Quarter: 2013Q3

REPORT INFORMATION
  Report Type: Spontaneous
  Country: US (occurrence: US)
  Receive Date: 20130829
  Receipt Date: 20130929
  Transmission Date: 20140515
  Serious: No
  Sender: FDA-Public Use
  Company Number: US-009507513-1308USA008004

PATIENT
  Sex: 0

DRUGS (3)
  1. TEMOZOLOMIDE [Suspect]
     Indication: CENTRAL NERVOUS SYSTEM LYMPHOMA
     Dosage: 150 MG/M2 (DAYS 7-11) OF EACH 28-DAY CYCLE,MONTHLY UNTIL COMPLETE RESPONSE, QM
     Route: 048
  2. METHOTREXATE [Suspect]
     Indication: CENTRAL NERVOUS SYSTEM LYMPHOMA
     Dosage: 3.5-8 G/M2 (DAYS 1, 15),EVERY 2 WEEKS UNTIL COMPLETE RESPONSE
     Route: 048
  3. RITUXIMAB [Suspect]
     Indication: CENTRAL NERVOUS SYSTEM LYMPHOMA
     Dosage: 375 MG/M2 (DAYS 3, 10, 17, 24),WEEKLY FOR A TOTAL OF 6 DOSES

REACTIONS (1)
  - Haematotoxicity [Unknown]
